FAERS Safety Report 5349559-0 (Version None)
Quarter: 2007Q2

REPORT INFORMATION
  Report Type: 
  Country: None (occurrence: None)
  Receive Date: 20070607
  Receipt Date: 20070601
  Transmission Date: 20071010
  Serious: Yes (Life-Threatening)
  Sender: FDA-Public Use
  Company Number: AU-ASTRAZENECA-2007AP03300

PATIENT
  Age: 21643 Day
  Sex: Female
  Weight: 100 kg

DRUGS (1)
  1. FASLODEX [Suspect]
     Route: 030
     Dates: start: 20070301, end: 20070528

REACTIONS (2)
  - PULMONARY EMBOLISM [None]
  - VENA CAVA THROMBOSIS [None]
